FAERS Safety Report 5473821-4 (Version None)
Quarter: 2007Q4

REPORT INFORMATION
  Report Type: 
  Country: None (occurrence: None)
  Receive Date: 20071001
  Receipt Date: 20070924
  Transmission Date: 20080405
  Serious: Yes (Death, Hospitalization)
  Sender: FDA-Public Use
  Company Number: IT-MERCK-0709ITA00037

PATIENT
  Age: 26 Day
  Sex: Female

DRUGS (2)
  1. CANCIDAS [Suspect]
     Indication: CATHETER RELATED INFECTION
     Route: 041
     Dates: start: 20050901, end: 20051001
  2. AMINO ACIDS (UNSPECIFIED) AND CARBOHYDRATES (UNSPECIFIED) AND ELECTROL [Concomitant]
     Route: 065
     Dates: start: 20050901

REACTIONS (3)
  - BLOOD ALKALINE PHOSPHATASE INCREASED [None]
  - CARDIO-RESPIRATORY ARREST [None]
  - GAMMA-GLUTAMYLTRANSFERASE INCREASED [None]
